FAERS Safety Report 3783170 (Version 3)
Quarter: 2012Q4

REPORT INFORMATION
  Report Type: 
  Country: FR (occurrence: FR)
  Receive Date: 20020411
  Receipt Date: 20121120
  Transmission Date: 20130627
  Serious: Yes (Hospitalization)
  Sender: FDA-Public Use
  Company Number: FR-ASTRAZENECA-2002CG00462

PATIENT
  Age: 3 Year
  Sex: Female
  Weight: 15 kg

DRUGS (1)
  1. LIDOCAINE\PRILOCAINE [Suspect]
     Indication: LOCAL ANAESTHESIA
     Route: 061
     Dates: start: 20020222, end: 20020222

REACTIONS (2)
  - Overdose [Recovered/Resolved]
  - Methaemoglobinaemia [Recovered/Resolved]
